FAERS Safety Report 8843104 (Version 2)
Quarter: 2012Q4

REPORT INFORMATION
  Report Type: 
  Country: MX (occurrence: MX)
  Receive Date: 20121016
  Receipt Date: 20121123
  Transmission Date: 20130627
  Serious: Yes (Hospitalization)
  Sender: FDA-Public Use
  Company Number: PHHY2012MX091678

PATIENT
  Age: 59 Year
  Sex: Male

DRUGS (1)
  1. EXFORGE [Suspect]
     Indication: HYPERTENSION
     Dosage: 1 DF, (160 mg vals/5 mg amlo) daily
     Route: 048
     Dates: start: 201208

REACTIONS (2)
  - Prostatic disorder [Unknown]
  - Hypertension [Unknown]
